FAERS Safety Report 11203680 (Version 3)
Quarter: 2016Q3

REPORT INFORMATION
  Report Type: Spontaneous
  Country: US (occurrence: US)
  Receive Date: 20150619
  Receipt Date: 20160721
  Transmission Date: 20161109
  Serious: Yes (Other)
  Sender: FDA-Public Use
  Company Number: US-ABBVIE-15P-163-1412582-00

PATIENT
  Age: 31 Year
  Sex: Female

DRUGS (4)
  1. RIBASPHERE [Suspect]
     Active Substance: RIBAVIRIN
     Indication: EXPOSURE VIA FATHER
     Route: 050
  2. VALTREX [Concomitant]
     Active Substance: VALACYCLOVIR HYDROCHLORIDE
     Indication: HERPES SIMPLEX
     Dates: start: 20141112, end: 20141115
  3. SOVALDI [Suspect]
     Active Substance: SOFOSBUVIR
     Indication: EXPOSURE VIA FATHER
     Route: 050
  4. PEGINTRON [Suspect]
     Active Substance: PEGINTERFERON ALFA-2B
     Indication: EXPOSURE VIA FATHER
     Route: 050

REACTIONS (3)
  - Exposure via partner [Unknown]
  - Herpes simplex [Unknown]
  - Maternal exposure before pregnancy [Unknown]
